FAERS Safety Report 9533617 (Version 1)
Quarter: 2013Q2

REPORT INFORMATION
  Report Type: Spontaneous
  Country: US (occurrence: None)
  Receive Date: 20130403
  Receipt Date: 20130403
  Transmission Date: 20140414
  Serious: Yes (Other)
  Sender: FDA-Public Use
  Company Number: US-2012-11381

PATIENT
  Age: 56 Month
  Sex: Male

DRUGS (4)
  1. BUSULFEX (BUSULFAN) INJECTION [Suspect]
     Indication: STEM CELL TRANSPLANT
     Dosage: FOR EVERY 6 HOURS X 16 DOSES OVER 4 DAYS
     Route: 042
  2. CYTOXAN [Concomitant]
  3. FLUDARABINE [Concomitant]
  4. ATG [Concomitant]

REACTIONS (2)
  - Acute graft versus host disease [None]
  - Chronic graft versus host disease [None]
